FAERS Safety Report 12105439 (Version 2)
Quarter: 2016Q3

REPORT INFORMATION
  Report Type: Spontaneous
  Country: US (occurrence: US)
  Receive Date: 20160223
  Receipt Date: 20160708
  Transmission Date: 20161109
  Serious: Yes (Hospitalization)
  Sender: FDA-Public Use
  Company Number: US-IPCA LABORATORIES LIMITED-IPC201602-000258

PATIENT
  Age: 81 Year
  Sex: Male
  Weight: 81 kg

DRUGS (6)
  1. CIPROFLOXACIN. [Concomitant]
     Active Substance: CIPROFLOXACIN
  2. WARFARIN [Suspect]
     Active Substance: WARFARIN
  3. WARFARIN [Suspect]
     Active Substance: WARFARIN
  4. PIPERACILLIN AND TAZOBACTAM [Concomitant]
     Active Substance: PIPERACILLIN SODIUM\TAZOBACTAM SODIUM
  5. WARFARIN [Suspect]
     Active Substance: WARFARIN
  6. HEPARIN [Concomitant]
     Active Substance: HEPARIN SODIUM

REACTIONS (2)
  - Anticoagulation drug level below therapeutic [Recovered/Resolved]
  - Food interaction [Unknown]
